FAERS Safety Report 8276656-2 (Version None)
Quarter: 2012Q2

REPORT INFORMATION
  Report Type: 
  Country: None (occurrence: None)
  Receive Date: 20120412
  Receipt Date: 20120409
  Transmission Date: 20120825
  Serious: Yes (Other)
  Sender: FDA-Public Use
  Company Number: US-RB-037670-12

PATIENT
  Age: 54 Year
  Sex: Male

DRUGS (1)
  1. MUCINEX DM [Suspect]
     Indication: PRODUCT USED FOR UNKNOWN INDICATION
     Route: 048
     Dates: start: 20120407

REACTIONS (4)
  - SWELLING FACE [None]
  - LIP SWELLING [None]
  - OEDEMA MOUTH [None]
  - SWELLING [None]
